FAERS Safety Report 20854592 (Version 1)
Quarter: 2022Q2

REPORT INFORMATION
  Report Type: Spontaneous
  Country: US (occurrence: US)
  Receive Date: 20220520
  Receipt Date: 20220520
  Transmission Date: 20220721
  Serious: Yes (Other)
  Sender: FDA-Public Use
  Company Number: US-TEVA-2022-US-2038892

PATIENT
  Age: 37 Year
  Sex: Female

DRUGS (3)
  1. RIZATRIPTAN [Suspect]
     Active Substance: RIZATRIPTAN
     Indication: Migraine
     Route: 065
  2. HYDROXYZINE [Suspect]
     Active Substance: HYDROXYZINE HYDROCHLORIDE
     Route: 065
  3. NURTEC ODT [Suspect]
     Active Substance: RIMEGEPANT SULFATE
     Indication: Migraine prophylaxis
     Dosage: ROUTE: ON TOP OF TONGUE
     Dates: start: 202111

REACTIONS (10)
  - Hallucination, visual [Unknown]
  - Hyperthyroidism [Recovered/Resolved]
  - Anxiety [Unknown]
  - Tremor [Unknown]
  - Panic attack [Unknown]
  - Depression [Unknown]
  - Feeling abnormal [Unknown]
  - Chest pain [Unknown]
  - Gastrooesophageal reflux disease [Unknown]
  - Therapeutic product effect delayed [Unknown]

NARRATIVE: CASE EVENT DATE: 20220301
